FAERS Safety Report 15729443 (Version 2)
Quarter: 2019Q1

REPORT INFORMATION
  Report Type: Spontaneous
  Country: GB (occurrence: GB)
  Receive Date: 20181217
  Receipt Date: 20190123
  Transmission Date: 20190417
  Serious: Yes (Death, Hospitalization)
  Sender: FDA-Public Use
  Company Number: GB-PFIZER INC-2018513827

PATIENT
  Age: 51 Year
  Sex: Male
  Weight: 89.9 kg

DRUGS (1)
  1. LORLATINIB [Suspect]
     Active Substance: LORLATINIB
     Dosage: 100 MG DAILY, EVERY 21 DAYS
     Route: 048
     Dates: start: 20170926, end: 20181025

REACTIONS (2)
  - Pneumonitis [Fatal]
  - Sepsis [Fatal]

NARRATIVE: CASE EVENT DATE: 20181024
